FAERS Safety Report 12109160 (Version 1)
Quarter: 2016Q1

REPORT INFORMATION
  Report Type: Spontaneous
  Country: US (occurrence: None)
  Receive Date: 20160222
  Receipt Date: 20160222
  Transmission Date: 20160526
  Serious: No
  Sender: FDA-Public Use
  Company Number: None

PATIENT
  Age: 71 Year
  Sex: Male
  Weight: 84.8 kg

DRUGS (2)
  1. BENDAMUSTINE HYDROCHLORIDE [Suspect]
     Active Substance: BENDAMUSTINE HYDROCHLORIDE
     Dates: end: 20160108
  2. RITUXIMAB [Suspect]
     Active Substance: RITUXIMAB
     Dates: end: 20160107

REACTIONS (1)
  - Anaemia [None]

NARRATIVE: CASE EVENT DATE: 20160211
